FAERS Safety Report 6913173-3 (Version None)
Quarter: 2010Q3

REPORT INFORMATION
  Report Type: 
  Country: None (occurrence: None)
  Receive Date: 20100806
  Receipt Date: 20091123
  Transmission Date: 20110219
  Serious: Yes (Hospitalization, Other)
  Sender: FDA-Public Use
  Company Number: US-PFIZER INC-2009157097

PATIENT
  Sex: Female
  Weight: 80 kg

DRUGS (15)
  1. DILANTIN-125 [Suspect]
     Indication: GRAND MAL CONVULSION
     Dosage: UNK
     Dates: start: 20060417, end: 20060522
  2. KEPPRA [Concomitant]
     Indication: ENCEPHALITIS
     Dosage: 1500 MG, 2X/DAY
  3. TRILEPTAL [Concomitant]
     Indication: GRAND MAL CONVULSION
     Dosage: 1200 MG, 2X/DAY
  4. PHENOBARBITAL [Concomitant]
     Dosage: 60 MG, UNK
  5. OCUFLOX [Concomitant]
     Dosage: UNK
     Dates: start: 20060501, end: 20060508
  6. ATIVAN [Concomitant]
     Indication: PRURITUS
     Dosage: 4 MG, UNK
     Dates: start: 20060503
  7. BACITRACIN [Concomitant]
     Route: 061
  8. ACETAMINOPHEN [Concomitant]
     Dosage: 650 MG, UNK
     Dates: start: 20060513
  9. AQUAPHOR HEALING OINTMENT [Concomitant]
     Dosage: UNK
     Dates: start: 20060515
  10. ZANTAC [Concomitant]
     Dosage: 150 MG, UNK
     Dates: start: 20060511
  11. PROPOFOL [Concomitant]
     Dosage: UNK
     Dates: start: 20060508
  12. GEODON [Concomitant]
     Dosage: 20 MG, UNK
     Dates: start: 20060514
  13. PREVACID [Concomitant]
  14. CEFOTAXIME [Concomitant]
  15. VANCOMYCIN [Concomitant]

REACTIONS (1)
  - STEVENS-JOHNSON SYNDROME [None]
